FAERS Safety Report 25504114 (Version 1)
Quarter: 2025Q3

REPORT INFORMATION
  Report Type: Other
  Country: EU (occurrence: EU)
  Receive Date: 20250702
  Receipt Date: 20250702
  Transmission Date: 20251021
  Serious: Yes (Other)
  Sender: APPCO PHARMA LLC
  Company Number: EU-Appco Pharma LLC-2179775

PATIENT
  Sex: Male

DRUGS (5)
  1. DOXYCYCLINE [Suspect]
     Active Substance: DOXYCYCLINE
     Indication: Prophylaxis
  2. AZITHROMYCIN [Suspect]
     Active Substance: AZITHROMYCIN
  3. RILPIVIRINE [Concomitant]
     Active Substance: RILPIVIRINE
  4. CABOTEGRAVIR [Concomitant]
     Active Substance: CABOTEGRAVIR
  5. AMOXICILLIN AND CLAVULANATE POTASSIUM [Suspect]
     Active Substance: AMOXICILLIN\CLAVULANATE POTASSIUM

REACTIONS (2)
  - Clostridium difficile infection [Recovered/Resolved]
  - Treatment noncompliance [Unknown]
